FAERS Safety Report 15009890 (Version 1)
Quarter: 2018Q2

REPORT INFORMATION
  Report Type: Spontaneous
  Country: US (occurrence: US)
  Receive Date: 20180614
  Receipt Date: 20180614
  Transmission Date: 20180711
  Serious: Yes (Hospitalization)
  Sender: FDA-Public Use
  Company Number: US-TEVA-2018-US-905554

PATIENT
  Age: 75 Year
  Sex: Male

DRUGS (4)
  1. FLUOROURACIL. [Suspect]
     Active Substance: FLUOROURACIL
     Indication: ANAL SQUAMOUS CELL CARCINOMA
     Route: 065
  2. FENTANYL (SYNCHROMED II) [Concomitant]
     Indication: PROCTALGIA
     Route: 037
  3. MITOMYCIN. [Suspect]
     Active Substance: MITOMYCIN
     Indication: ANAL SQUAMOUS CELL CARCINOMA
     Route: 065
  4. FENTANYL. [Concomitant]
     Active Substance: FENTANYL
     Indication: PROCTALGIA
     Dosage: 25MCG DAILY; ONE OR TWO
     Route: 040

REACTIONS (3)
  - Infection [Recovered/Resolved]
  - Brain abscess [Recovered/Resolved]
  - Beta haemolytic streptococcal infection [Recovered/Resolved]
